FAERS Safety Report 20458654 (Version 2)
Quarter: 2022Q2

REPORT INFORMATION
  Report Type: Report from Study
  Country: US (occurrence: US)
  Receive Date: 20220211
  Receipt Date: 20220408
  Transmission Date: 20220721
  Serious: Yes (Hospitalization)
  Sender: FDA-Public Use
  Company Number: US-ABBVIE-22K-163-4260134-00

PATIENT
  Sex: Female

DRUGS (1)
  1. IMBRUVICA [Suspect]
     Active Substance: IBRUTINIB
     Indication: Chronic lymphocytic leukaemia
     Route: 048
     Dates: start: 20210805

REACTIONS (3)
  - Oxygen saturation decreased [Unknown]
  - Respiratory tract infection [Unknown]
  - Respiratory tract oedema [Unknown]

NARRATIVE: CASE EVENT DATE: 20220101
